FAERS Safety Report 11895120 (Version 2)
Quarter: 2016Q1

REPORT INFORMATION
  Report Type: Spontaneous
  Country: US (occurrence: US)
  Receive Date: 20160107
  Receipt Date: 20160127
  Transmission Date: 20160526
  Serious: No
  Sender: FDA-Public Use
  Company Number: US-PFIZER INC-2015451151

PATIENT
  Age: 68 Year
  Sex: Male
  Weight: 81 kg

DRUGS (1)
  1. SUTENT [Suspect]
     Active Substance: SUNITINIB MALATE
     Indication: RENAL CANCER
     Dosage: 50 MG, CYCLIC (D1-D14 Q21 DAYS)
     Route: 048
     Dates: start: 20151102, end: 20160122

REACTIONS (4)
  - Mouth ulceration [Recovered/Resolved]
  - Renal cancer [Unknown]
  - Disease progression [Unknown]
  - Ageusia [Unknown]
